FAERS Safety Report 9974202 (Version 1)
Quarter: 2014Q1

REPORT INFORMATION
  Report Type: Spontaneous
  Country: US (occurrence: US)
  Receive Date: 20140306
  Receipt Date: 20140306
  Transmission Date: 20141002
  Serious: No
  Sender: FDA-Public Use
  Company Number: US-ABBVIE-13P-163-1156844-00

PATIENT
  Sex: Female

DRUGS (7)
  1. HUMIRA [Suspect]
     Indication: CROHN^S DISEASE
     Dates: start: 2013
  2. XARELTO [Concomitant]
     Indication: THROMBOSIS PROPHYLAXIS
     Dates: start: 2013
  3. VITAMIN C [Concomitant]
     Indication: SUPPLEMENTATION THERAPY
  4. VITAMIN E [Concomitant]
     Indication: SUPPLEMENTATION THERAPY
  5. KRILL OMEGA RED OIL [Concomitant]
     Indication: SUPPLEMENTATION THERAPY
  6. CALTRATE + D [Concomitant]
     Indication: SUPPLEMENTATION THERAPY
  7. PRIMROSE OIL [Concomitant]
     Indication: SUPPLEMENTATION THERAPY

REACTIONS (5)
  - Arthralgia [Not Recovered/Not Resolved]
  - Musculoskeletal pain [Not Recovered/Not Resolved]
  - Arthralgia [Not Recovered/Not Resolved]
  - Pain in extremity [Not Recovered/Not Resolved]
  - Crohn^s disease [Unknown]
